FAERS Safety Report 8614660-2 (Version None)
Quarter: 2012Q3

REPORT INFORMATION
  Report Type: 
  Country: None (occurrence: None)
  Receive Date: 20120809
  Receipt Date: 20120730
  Transmission Date: 20120928
  Serious: Yes (Hospitalization, Other)
  Sender: FDA-Public Use
  Company Number: 2012P1052509

PATIENT
  Age: 31 Year
  Sex: Female

DRUGS (1)
  1. AMOXICILLIN AND CLAVULANATE POTASSIUM [Suspect]
     Indication: SINUSITIS

REACTIONS (4)
  - ENTEROCOLITIS HAEMORRHAGIC [None]
  - KLEBSIELLA INFECTION [None]
  - CLOSTRIDIAL INFECTION [None]
  - CULTURE STOOL POSITIVE [None]
